FAERS Safety Report 25853638 (Version 2)
Quarter: 2025Q4

REPORT INFORMATION
  Report Type: Spontaneous
  Country: EU (occurrence: EU)
  Receive Date: 20250926
  Receipt Date: 20251020
  Transmission Date: 20260118
  Serious: Yes (Death)
  Sender: MYLAN
  Company Number: None

PATIENT
  Age: 73 Year
  Sex: Male
  Weight: 73.5 kg

DRUGS (48)
  1. OXALIPLATIN [Suspect]
     Active Substance: OXALIPLATIN
     Indication: Adenocarcinoma of colon
     Dosage: 110 MILLIGRAM, 1 TOTAL
     Dates: start: 20250905, end: 20250905
  2. OXALIPLATIN [Suspect]
     Active Substance: OXALIPLATIN
     Dosage: 110 MILLIGRAM, 1 TOTAL
     Route: 042
     Dates: start: 20250905, end: 20250905
  3. OXALIPLATIN [Suspect]
     Active Substance: OXALIPLATIN
     Dosage: 110 MILLIGRAM, 1 TOTAL
     Route: 042
     Dates: start: 20250905, end: 20250905
  4. OXALIPLATIN [Suspect]
     Active Substance: OXALIPLATIN
     Dosage: 110 MILLIGRAM, 1 TOTAL
     Dates: start: 20250905, end: 20250905
  5. ZOLEDRONIC ACID [Suspect]
     Active Substance: ZOLEDRONIC ACID
     Indication: Metastases to bone
     Dosage: 4 MILLIGRAM, QD
     Dates: start: 20250827, end: 20250830
  6. ZOLEDRONIC ACID [Suspect]
     Active Substance: ZOLEDRONIC ACID
     Dosage: 4 MILLIGRAM, QD
     Route: 042
     Dates: start: 20250827, end: 20250830
  7. ZOLEDRONIC ACID [Suspect]
     Active Substance: ZOLEDRONIC ACID
     Dosage: 4 MILLIGRAM, QD
     Route: 042
     Dates: start: 20250827, end: 20250830
  8. ZOLEDRONIC ACID [Suspect]
     Active Substance: ZOLEDRONIC ACID
     Dosage: 4 MILLIGRAM, QD
     Dates: start: 20250827, end: 20250830
  9. VECTIBIX [Suspect]
     Active Substance: PANITUMUMAB
     Indication: Adenocarcinoma of colon
     Dosage: 940 MILLIGRAM, 1 TOTAL
     Dates: start: 20250905, end: 20250905
  10. VECTIBIX [Suspect]
     Active Substance: PANITUMUMAB
     Dosage: 940 MILLIGRAM, 1 TOTAL
     Route: 042
     Dates: start: 20250905, end: 20250905
  11. VECTIBIX [Suspect]
     Active Substance: PANITUMUMAB
     Dosage: 940 MILLIGRAM, 1 TOTAL
     Route: 042
     Dates: start: 20250905, end: 20250905
  12. VECTIBIX [Suspect]
     Active Substance: PANITUMUMAB
     Dosage: 940 MILLIGRAM, 1 TOTAL
     Dates: start: 20250905, end: 20250905
  13. FLUOROURACIL [Suspect]
     Active Substance: FLUOROURACIL
     Indication: Adenocarcinoma of colon
     Dosage: 2070 MILLIGRAM, 1 TOTAL
     Dates: start: 20250905, end: 20250906
  14. FLUOROURACIL [Suspect]
     Active Substance: FLUOROURACIL
     Dosage: 2070 MILLIGRAM, 1 TOTAL
     Route: 042
     Dates: start: 20250905, end: 20250906
  15. FLUOROURACIL [Suspect]
     Active Substance: FLUOROURACIL
     Dosage: 2070 MILLIGRAM, 1 TOTAL
     Route: 042
     Dates: start: 20250905, end: 20250906
  16. FLUOROURACIL [Suspect]
     Active Substance: FLUOROURACIL
     Dosage: 2070 MILLIGRAM, 1 TOTAL
     Dates: start: 20250905, end: 20250906
  17. CERNEVIT [Concomitant]
     Active Substance: VITAMINS
     Dosage: UNK
  18. CERNEVIT [Concomitant]
     Active Substance: VITAMINS
     Dosage: UNK
     Route: 065
  19. CERNEVIT [Concomitant]
     Active Substance: VITAMINS
     Dosage: UNK
     Route: 065
  20. CERNEVIT [Concomitant]
     Active Substance: VITAMINS
     Dosage: UNK
  21. IRON\MINERALS\POTASSIUM IOD\SODIUM FLUORIDE\SODIUM MOLYBDATE\SODIUM SE [Concomitant]
     Active Substance: IRON\MINERALS\POTASSIUM IOD\SODIUM FLUORIDE\SODIUM MOLYBDATE\SODIUM SELENITE\ZINC
     Dosage: UNK
  22. IRON\MINERALS\POTASSIUM IOD\SODIUM FLUORIDE\SODIUM MOLYBDATE\SODIUM SE [Concomitant]
     Active Substance: IRON\MINERALS\POTASSIUM IOD\SODIUM FLUORIDE\SODIUM MOLYBDATE\SODIUM SELENITE\ZINC
     Dosage: UNK
     Route: 065
  23. IRON\MINERALS\POTASSIUM IOD\SODIUM FLUORIDE\SODIUM MOLYBDATE\SODIUM SE [Concomitant]
     Active Substance: IRON\MINERALS\POTASSIUM IOD\SODIUM FLUORIDE\SODIUM MOLYBDATE\SODIUM SELENITE\ZINC
     Dosage: UNK
     Route: 065
  24. IRON\MINERALS\POTASSIUM IOD\SODIUM FLUORIDE\SODIUM MOLYBDATE\SODIUM SE [Concomitant]
     Active Substance: IRON\MINERALS\POTASSIUM IOD\SODIUM FLUORIDE\SODIUM MOLYBDATE\SODIUM SELENITE\ZINC
     Dosage: UNK
  25. APREPITANT [Concomitant]
     Active Substance: APREPITANT
     Dosage: UNK
  26. APREPITANT [Concomitant]
     Active Substance: APREPITANT
     Dosage: UNK
     Route: 065
  27. APREPITANT [Concomitant]
     Active Substance: APREPITANT
     Dosage: UNK
     Route: 065
  28. APREPITANT [Concomitant]
     Active Substance: APREPITANT
     Dosage: UNK
  29. LANSOPRAZOLE [Concomitant]
     Active Substance: LANSOPRAZOLE
     Dosage: UNK
  30. LANSOPRAZOLE [Concomitant]
     Active Substance: LANSOPRAZOLE
     Dosage: UNK
     Route: 065
  31. LANSOPRAZOLE [Concomitant]
     Active Substance: LANSOPRAZOLE
     Dosage: UNK
     Route: 065
  32. LANSOPRAZOLE [Concomitant]
     Active Substance: LANSOPRAZOLE
     Dosage: UNK
  33. OXYCODONE [Concomitant]
     Active Substance: OXYCODONE
     Dosage: UNK
  34. OXYCODONE [Concomitant]
     Active Substance: OXYCODONE
     Dosage: UNK
     Route: 065
  35. OXYCODONE [Concomitant]
     Active Substance: OXYCODONE
     Dosage: UNK
     Route: 065
  36. OXYCODONE [Concomitant]
     Active Substance: OXYCODONE
     Dosage: UNK
  37. ACETAMINOPHEN [Concomitant]
     Active Substance: ACETAMINOPHEN
     Dosage: UNK
  38. ACETAMINOPHEN [Concomitant]
     Active Substance: ACETAMINOPHEN
     Dosage: UNK
     Route: 065
  39. ACETAMINOPHEN [Concomitant]
     Active Substance: ACETAMINOPHEN
     Dosage: UNK
     Route: 065
  40. ACETAMINOPHEN [Concomitant]
     Active Substance: ACETAMINOPHEN
     Dosage: UNK
  41. ROSUVASTATIN [Concomitant]
     Active Substance: ROSUVASTATIN
     Dosage: UNK
  42. ROSUVASTATIN [Concomitant]
     Active Substance: ROSUVASTATIN
     Dosage: UNK
     Route: 065
  43. ROSUVASTATIN [Concomitant]
     Active Substance: ROSUVASTATIN
     Dosage: UNK
     Route: 065
  44. ROSUVASTATIN [Concomitant]
     Active Substance: ROSUVASTATIN
     Dosage: UNK
  45. METHYLPREDNISOLONE [Concomitant]
     Active Substance: METHYLPREDNISOLONE
     Dosage: UNK
  46. METHYLPREDNISOLONE [Concomitant]
     Active Substance: METHYLPREDNISOLONE
     Dosage: UNK
     Route: 065
  47. METHYLPREDNISOLONE [Concomitant]
     Active Substance: METHYLPREDNISOLONE
     Dosage: UNK
     Route: 065
  48. METHYLPREDNISOLONE [Concomitant]
     Active Substance: METHYLPREDNISOLONE
     Dosage: UNK

REACTIONS (4)
  - Acute kidney injury [Fatal]
  - Confusional state [Fatal]
  - Incorrect product administration duration [Recovered/Resolved]
  - Wrong schedule [Recovered/Resolved]

NARRATIVE: CASE EVENT DATE: 20250828
